FAERS Safety Report 23763770 (Version 1)
Quarter: 2024Q2

REPORT INFORMATION
  Report Type: Report from Study
  Country: US (occurrence: None)
  Receive Date: 20240419
  Receipt Date: 20240419
  Transmission Date: 20240716
  Serious: Yes (Other)
  Sender: FDA-Public Use
  Company Number: 2024A092772

PATIENT
  Sex: Female

DRUGS (2)
  1. LYNPARZA [Suspect]
     Active Substance: OLAPARIB
     Indication: Ovarian cancer
     Route: 048
     Dates: start: 202103
  2. LYNPARZA [Suspect]
     Active Substance: OLAPARIB
     Indication: Metastases to ovary
     Route: 048
     Dates: start: 202103

REACTIONS (3)
  - Dizziness [Unknown]
  - Syncope [Unknown]
  - Gait disturbance [Unknown]
